FAERS Safety Report 4676657-7 (Version None)
Quarter: 2005Q2

REPORT INFORMATION
  Report Type: 
  Country: None (occurrence: None)
  Receive Date: 20050526
  Receipt Date: 20050516
  Transmission Date: 20051028
  Serious: Yes (Death, Hospitalization, Other)
  Sender: FDA-Public Use
  Company Number: 2004059901

PATIENT
  Age: 50 Year
  Sex: Female
  Weight: 38.5557 kg

DRUGS (12)
  1. NEURONTIN [Suspect]
     Indication: ARTHRALGIA
  2. NEURONTIN [Suspect]
     Indication: DEPRESSION
  3. NEURONTIN [Suspect]
     Indication: FATIGUE
  4. NEURONTIN [Suspect]
     Indication: MOVEMENT DISORDER
  5. XANAX [Suspect]
     Indication: ILL-DEFINED DISORDER
     Dosage: 4 MG (1 MG, 4 IN 1 D), ORAL
     Route: 048
     Dates: start: 19990101
  6. LITHIUM CARBONATE [Suspect]
     Indication: BIPOLAR DISORDER
     Dosage: 600 MG (300 MG, 2 IN 1 D), ORAL
     Route: 048
  7. FLUOXETINE HCL [Suspect]
     Indication: ILL-DEFINED DISORDER
     Dosage: 20 MG (20 MG, 1 IN 1 D), ORAL
     Route: 048
     Dates: start: 19990101
  8. LORAZEPAM [Suspect]
     Indication: ANXIETY
     Dates: start: 20010616
  9. ZOLPIDEM TARTRATE [Suspect]
     Indication: INSOMNIA
     Dosage: 10 MG (10 MG, 1 IN 1 D), ORAL
     Route: 048
     Dates: start: 20010617
  10. TEMAZEPAM [Concomitant]
  11. DIAZEPAM [Concomitant]
  12. OLANZAPINE (OLANZAPINE) [Concomitant]

REACTIONS (15)
  - ACUTE RESPIRATORY FAILURE [None]
  - AGITATION [None]
  - ANXIETY [None]
  - AORTIC INJURY [None]
  - COMPLETED SUICIDE [None]
  - HAEMOTHORAX [None]
  - LUNG INJURY [None]
  - MAJOR DEPRESSION [None]
  - MULTIPLE DRUG OVERDOSE [None]
  - PAIN [None]
  - PELVIC FRACTURE [None]
  - POLYTRAUMATISM [None]
  - RIB FRACTURE [None]
  - SUICIDAL IDEATION [None]
  - SUICIDE ATTEMPT [None]
